FAERS Safety Report 5518935-5 (Version None)
Quarter: 2007Q4

REPORT INFORMATION
  Report Type: 
  Country: None (occurrence: None)
  Receive Date: 20071114
  Receipt Date: 20071114
  Transmission Date: 20080405
  Serious: Yes (Other)
  Sender: FDA-Public Use
  Company Number: None

PATIENT
  Age: 80 Year
  Sex: Female
  Weight: 77.1115 kg

DRUGS (1)
  1. ZOLPIDEM TARTRATE [Suspect]
     Indication: INSOMNIA
     Dosage: 1 TABLET-I CUT IN HALF-  1 AT NITE
     Dates: start: 20070822, end: 20070828

REACTIONS (6)
  - ABDOMINAL PAIN UPPER [None]
  - DYSGEUSIA [None]
  - EAR DISCOMFORT [None]
  - MUSCULOSKELETAL DISCOMFORT [None]
  - PAIN [None]
  - PAIN IN EXTREMITY [None]
